FAERS Safety Report 23179734 (Version 2)
Quarter: 2023Q4

REPORT INFORMATION
  Report Type: Report from Study
  Country: CA (occurrence: CA)
  Receive Date: 20231114
  Receipt Date: 20231115
  Transmission Date: 20240109
  Serious: Yes (Other)
  Sender: FDA-Public Use
  Company Number: CA-JNJFOC-20230573006

PATIENT
  Age: 53 Year
  Sex: Female

DRUGS (1)
  1. REMICADE [Suspect]
     Active Substance: INFLIXIMAB
     Indication: Sarcoidosis
     Dosage: 3RD INDUCTION DOSE ON 30-MAY-2023.?RECENT DOSE ADMINISTERED ON 26-JUN-2023.
     Route: 042
     Dates: start: 20230418

REACTIONS (9)
  - Emotional distress [Unknown]
  - Neuralgia [Unknown]
  - Sarcoidosis [Not Recovered/Not Resolved]
  - Insomnia [Unknown]
  - Paraesthesia [Not Recovered/Not Resolved]
  - Impaired work ability [Unknown]
  - Nail discolouration [Not Recovered/Not Resolved]
  - Peripheral swelling [Not Recovered/Not Resolved]
  - Drug ineffective for unapproved indication [Unknown]

NARRATIVE: CASE EVENT DATE: 20230101
